FAERS Safety Report 14167359 (Version 2)
Quarter: 2017Q4

REPORT INFORMATION
  Report Type: Spontaneous
  Country: ID (occurrence: ID)
  Receive Date: 20171107
  Receipt Date: 20171201
  Transmission Date: 20180321
  Serious: Yes (Death, Other)
  Sender: FDA-Public Use
  Company Number: ID-B.I. PHARMACEUTICALS,INC./RIDGEFIELD-2017-BI-020499

PATIENT
  Age: 60 Year
  Sex: Male

DRUGS (1)
  1. GILOTRIF [Suspect]
     Active Substance: AFATINIB
     Indication: SQUAMOUS CELL CARCINOMA OF LUNG
     Route: 065
     Dates: start: 201702, end: 201710

REACTIONS (6)
  - Off label use [Unknown]
  - Eating disorder [Unknown]
  - Candida infection [Unknown]
  - Malignant neoplasm progression [Fatal]
  - Metastases to pharynx [Unknown]
  - Asthenia [Unknown]
